FAERS Safety Report 6997293-3 (Version None)
Quarter: 2010Q3

REPORT INFORMATION
  Report Type: 
  Country: None (occurrence: None)
  Receive Date: 20100918
  Receipt Date: 20091007
  Transmission Date: 20110219
  Serious: No
  Sender: FDA-Public Use
  Company Number: US-WYE-H11456409

PATIENT
  Sex: Female
  Weight: 81.72 kg

DRUGS (6)
  1. PRISTIQ [Suspect]
     Indication: DEPRESSION
     Route: 048
     Dates: start: 20090701
  2. NEXIUM [Concomitant]
  3. VALIUM [Concomitant]
  4. TRAZODONE HCL [Concomitant]
  5. PERCOCET [Concomitant]
  6. OXYCONTIN [Concomitant]

REACTIONS (3)
  - DRUG INEFFECTIVE [None]
  - FOOD INTERACTION [None]
  - MEDICATION RESIDUE [None]
